FAERS Safety Report 25163656 (Version 1)
Quarter: 2025Q2

REPORT INFORMATION
  Report Type: Spontaneous
  Country: FR (occurrence: FR)
  Receive Date: 20250405
  Receipt Date: 20250405
  Transmission Date: 20250716
  Serious: Yes (Hospitalization)
  Sender: ROCHE
  Company Number: FR-002147023-NVSC2025FR054044

PATIENT
  Sex: Male

DRUGS (1)
  1. LUCENTIS [Suspect]
     Active Substance: RANIBIZUMAB
     Indication: Product used for unknown indication
     Route: 065

REACTIONS (12)
  - Blindness [Unknown]
  - Abdominal pain upper [Unknown]
  - Eye pain [Unknown]
  - Vision blurred [Unknown]
  - Ocular hyperaemia [Unknown]
  - Visual acuity reduced [Unknown]
  - Headache [Unknown]
  - Weight decreased [Unknown]
  - Fatigue [Unknown]
  - Gait disturbance [Unknown]
  - Balance disorder [Unknown]
  - Tooth loss [Unknown]
